FAERS Safety Report 5844472-4 (Version None)
Quarter: 2008Q3

REPORT INFORMATION
  Report Type: 
  Country: None (occurrence: None)
  Receive Date: 20080812
  Receipt Date: 20080801
  Transmission Date: 20090109
  Serious: Yes (Hospitalization)
  Sender: FDA-Public Use
  Company Number: 2008BI007882

PATIENT
  Age: 50 Year
  Sex: Female

DRUGS (1)
  1. AVONEX [Suspect]
     Indication: MULTIPLE SCLEROSIS
     Dosage: 30 UG; QW; IM
     Route: 030
     Dates: start: 19990212

REACTIONS (6)
  - AMNESIA [None]
  - ASTHENIA [None]
  - CHOLECYSTITIS ACUTE [None]
  - HAEMORRHAGE [None]
  - HERNIA [None]
  - PAIN [None]
